FAERS Safety Report 11583065 (Version 1)
Quarter: 2015Q3

REPORT INFORMATION
  Report Type: Spontaneous
  Country: US (occurrence: None)
  Receive Date: 20150930
  Receipt Date: 20150930
  Transmission Date: 20151125
  Serious: Yes (Disabling)
  Sender: FDA-Public Use
  Company Number: None

PATIENT
  Age: 21 Year
  Sex: Female
  Weight: 77.11 kg

DRUGS (3)
  1. NEXPLANON [Suspect]
     Active Substance: ETONOGESTREL
     Dates: start: 20130729, end: 20141212
  2. CATAPLEX-G [Concomitant]
  3. MINCHEX [Concomitant]

REACTIONS (4)
  - Multiple sclerosis [None]
  - Generalised oedema [None]
  - Hypoaesthesia [None]
  - Fibromyalgia [None]

NARRATIVE: CASE EVENT DATE: 20130901
